FAERS Safety Report 9297765 (Version 1)
Quarter: 2013Q2

REPORT INFORMATION
  Report Type: Spontaneous
  Country: US (occurrence: US)
  Receive Date: 20130520
  Receipt Date: 20130520
  Transmission Date: 20140414
  Serious: Yes (Other)
  Sender: FDA-Public Use
  Company Number: PHEH2013US010797

PATIENT
  Sex: Female

DRUGS (1)
  1. CLOZARIL [Suspect]
     Dosage: 450 MG, DAILY
     Dates: start: 1997

REACTIONS (2)
  - Neoplasm malignant [Unknown]
  - White blood cell count decreased [Unknown]
